FAERS Safety Report 11274011 (Version 1)
Quarter: 2015Q3

REPORT INFORMATION
  Report Type: Spontaneous
  Country: SE (occurrence: SE)
  Receive Date: 20150715
  Receipt Date: 20150715
  Transmission Date: 20151125
  Serious: Yes (Disabling)
  Sender: FDA-Public Use
  Company Number: SE-TEVA-578335ISR

PATIENT
  Age: 77 Year
  Sex: Male

DRUGS (1)
  1. BICALUTAMIDE TABLETTER [Suspect]
     Active Substance: BICALUTAMIDE
     Route: 065

REACTIONS (1)
  - Hyperacusis [Unknown]
